FAERS Safety Report 6884998-8 (Version None)
Quarter: 2010Q3

REPORT INFORMATION
  Report Type: 
  Country: None (occurrence: None)
  Receive Date: 20100729
  Receipt Date: 20071009
  Transmission Date: 20110219
  Serious: No
  Sender: FDA-Public Use
  Company Number: US-PFIZER INC-2007084165

PATIENT
  Sex: Female
  Weight: 68.2 kg

DRUGS (12)
  1. CELEBREX [Suspect]
     Indication: OSTEOARTHRITIS
     Dates: start: 20070901
  2. PAXIL [Concomitant]
     Indication: DEPRESSION
  3. OXYCODONE [Concomitant]
     Indication: PAIN
  4. BACLOFEN [Concomitant]
     Indication: MUSCLE RELAXANT THERAPY
  5. ACETAMINOPHEN [Concomitant]
  6. ATENOLOL [Concomitant]
     Indication: HYPERTENSION
  7. PROTONIX [Concomitant]
  8. HYDROCHLOROTHIAZIDE [Concomitant]
     Indication: HYPERTENSION
  9. REQUIP [Concomitant]
     Indication: RESTLESS LEGS SYNDROME
  10. KLONOPIN [Concomitant]
     Indication: RESTLESS LEGS SYNDROME
  11. ATIVAN [Concomitant]
  12. LOMOTIL [Concomitant]

REACTIONS (1)
  - FLATULENCE [None]
